FAERS Safety Report 15493799 (Version 1)
Quarter: 2018Q4

REPORT INFORMATION
  Report Type: Spontaneous
  Country: US (occurrence: US)
  Receive Date: 20181004
  Receipt Date: 20181004
  Transmission Date: 20190205
  Serious: Yes (Hospitalization)
  Sender: FDA-Public Use
  Company Number: None

PATIENT
  Age: 54 Year
  Sex: Male
  Weight: 96.7 kg

DRUGS (1)
  1. BEVACIZUMAB (RHUMAB VEGF) [Suspect]
     Active Substance: BEVACIZUMAB
     Dates: end: 20180503

REACTIONS (4)
  - Device related infection [None]
  - Arthritis bacterial [None]
  - Joint swelling [None]
  - Staphylococcal sepsis [None]

NARRATIVE: CASE EVENT DATE: 20180507
